FAERS Safety Report 10154971 (Version 1)
Quarter: 2014Q2

REPORT INFORMATION
  Report Type: Spontaneous
  Country: GB (occurrence: GB)
  Receive Date: 20140506
  Receipt Date: 20140506
  Transmission Date: 20141212
  Serious: Yes (Other)
  Sender: FDA-Public Use
  Company Number: GB-B.I. PHARMACEUTICALS,INC./RIDGEFIELD-2014-BI-19513UK

PATIENT
  Age: 78 Year
  Sex: Male
  Weight: 80 kg

DRUGS (12)
  1. PRADAXA [Suspect]
     Indication: ATRIAL FIBRILLATION
     Dosage: 300 MG
     Route: 048
     Dates: start: 20130626, end: 20131217
  2. AMLODIPINE [Concomitant]
     Indication: HYPERTENSION
     Dosage: 10 MG
     Route: 065
  3. ANUSOL [Concomitant]
     Route: 065
  4. CIPROFLOXACIN [Concomitant]
     Indication: INFECTION
     Dosage: 500 MG
     Route: 065
  5. CONTIFLO [Concomitant]
     Dosage: 400 MCG
     Route: 065
  6. DAKTACORT [Concomitant]
     Route: 065
  7. EARCALM 2% [Concomitant]
     Route: 065
  8. MOMETASONE [Concomitant]
     Indication: HYPERSENSITIVITY
     Dosage: 2 ANZ
     Route: 065
  9. NEBIVOLOL [Concomitant]
     Dosage: 5 MG
     Route: 065
  10. PARACETAMOL [Concomitant]
     Indication: PYREXIA
     Dosage: 500 MG
     Route: 065
  11. PARACETAMOL [Concomitant]
     Indication: PAIN
  12. PIROXICAM 0.5% [Concomitant]
     Route: 065

REACTIONS (3)
  - Subdural haematoma [Recovered/Resolved]
  - Headache [Recovered/Resolved]
  - Sensory loss [Recovered/Resolved]
